FAERS Safety Report 5689335-2 (Version None)
Quarter: 2008Q1

REPORT INFORMATION
  Report Type: 
  Country: None (occurrence: None)
  Receive Date: 20080328
  Receipt Date: 20080319
  Transmission Date: 20080703
  Serious: Yes (Other)
  Sender: FDA-Public Use
  Company Number: 2008006852

PATIENT
  Age: 79 Year
  Sex: Female
  Weight: 76.2 kg

DRUGS (2)
  1. BENADRYL [Suspect]
     Indication: HYPERSENSITIVITY
     Dosage: ONE TABLET ONCE (1 IN 1 D), ORAL
     Route: 048
     Dates: start: 20080314, end: 20080314
  2. DRUG, UNSPECIFIED (DRUG, UNSPECIFIED) [Concomitant]

REACTIONS (7)
  - DYSPNOEA [None]
  - EATING DISORDER [None]
  - EYE SWELLING [None]
  - LIP SWELLING [None]
  - MALAISE [None]
  - SPEECH DISORDER [None]
  - SWELLING FACE [None]
